FAERS Safety Report 18512469 (Version 1)
Quarter: 2020Q4

REPORT INFORMATION
  Report Type: Spontaneous
  Country: DE (occurrence: DE)
  Receive Date: 20201117
  Receipt Date: 20201117
  Transmission Date: 20210114
  Serious: Yes (Other)
  Sender: FDA-Public Use
  Company Number: DE-GILEAD-2020-0504361

PATIENT
  Sex: Male

DRUGS (3)
  1. VEKLURY [Suspect]
     Active Substance: REMDESIVIR
     Indication: COVID-19
     Dosage: 200 MG, ONCE
     Route: 042
     Dates: start: 20201111, end: 20201111
  2. GINKOBIL [Concomitant]
     Active Substance: GINKGO
     Indication: TINNITUS
     Dosage: 80 MG
  3. INNOHEP [Concomitant]
     Active Substance: TINZAPARIN SODIUM
     Indication: COVID-19
     Dosage: 0.7 ML
     Dates: start: 20201011

REACTIONS (1)
  - Rash [Not Recovered/Not Resolved]

NARRATIVE: CASE EVENT DATE: 20201111
